FAERS Safety Report 7361429-5 (Version None)
Quarter: 2011Q1

REPORT INFORMATION
  Report Type: 
  Country: None (occurrence: None)
  Receive Date: 20110318
  Receipt Date: 20110308
  Transmission Date: 20110831
  Serious: Yes (Death, Hospitalization)
  Sender: FDA-Public Use
  Company Number: FR-EISAI INC-E3810-04525-SPO-FR

PATIENT
  Sex: Male
  Weight: 61 kg

DRUGS (11)
  1. TAHOR [Concomitant]
     Indication: HYPOCHOLESTEROLAEMIA
     Dosage: UNKNOWN
     Route: 065
  2. SOLU-MEDROL [Suspect]
     Indication: PAIN
     Route: 042
     Dates: start: 20110204
  3. CACIT D3 [Concomitant]
     Indication: VITAMIN D DEFICIENCY
     Dosage: UNKNOWN
     Route: 065
  4. SOLU-MEDROL [Suspect]
     Route: 042
     Dates: start: 20110204
  5. SOLUPRED [Suspect]
     Indication: PAIN
     Route: 048
     Dates: start: 20110204, end: 20110207
  6. MOVIPREP [Concomitant]
     Dosage: UNKNOWN
     Route: 065
  7. LYRICA [Concomitant]
     Indication: PAIN
     Dosage: UNKNOWN
     Route: 065
  8. ACTISKENAN [Concomitant]
     Indication: PAIN
     Dosage: UNKNOWN
     Route: 065
  9. PARIET (RABEPRAZOLE) [Suspect]
     Indication: PROPHYLAXIS AGAINST GASTROINTESTINAL ULCER
     Route: 048
  10. ABIRATERONE [Suspect]
     Indication: PROSTATE CANCER
     Route: 065
     Dates: start: 20110205, end: 20110206
  11. ACETAMINOPHEN [Concomitant]
     Indication: PAIN
     Route: 065

REACTIONS (2)
  - CEREBRAL HAEMORRHAGE [None]
  - HYPERTENSIVE CRISIS [None]
